FAERS Safety Report 4678983-4 (Version None)
Quarter: 2005Q2

REPORT INFORMATION
  Report Type: 
  Country: None (occurrence: None)
  Receive Date: 20050525
  Receipt Date: 20050412
  Transmission Date: 20051028
  Serious: No
  Sender: FDA-Public Use
  Company Number: 212668

PATIENT
  Age: 39 Year
  Sex: Female
  Weight: 106.1 kg

DRUGS (1)
  1. RAPTIVA [Suspect]
     Indication: PSORIASIS
     Dosage: 1 MG/KG, 1/WEEK
     Dates: start: 20050123, end: 20050220

REACTIONS (1)
  - BLOOD PRESSURE INCREASED [None]
